FAERS Safety Report 14340138 (Version 3)
Quarter: 2021Q1

REPORT INFORMATION
  Report Type: Report from Study
  Country: IL (occurrence: IL)
  Receive Date: 20171231
  Receipt Date: 20210222
  Transmission Date: 20210419
  Serious: Yes (Other)
  Sender: FDA-Public Use
  Company Number: PHHY2017IL196143

PATIENT
  Age: 70 Year
  Sex: Female

DRUGS (3)
  1. SANDOSTATIN LAR DEPOT [Suspect]
     Active Substance: OCTREOTIDE ACETATE
     Indication: ACROMEGALY
     Dosage: 30 MG, Q3W
     Route: 030
     Dates: start: 20140722
  2. SANDOSTATIN LAR DEPOT [Suspect]
     Active Substance: OCTREOTIDE ACETATE
  3. SANDOSTATIN LAR DEPOT [Suspect]
     Active Substance: OCTREOTIDE ACETATE

REACTIONS (8)
  - Haemorrhage [Unknown]
  - Dyspnoea exertional [Not Recovered/Not Resolved]
  - Anaemia [Unknown]
  - Asthenia [Recovering/Resolving]
  - Blood iron decreased [Unknown]
  - Inappropriate schedule of product administration [Unknown]
  - Gastrointestinal angiodysplasia [Unknown]
  - Mitral valve stenosis [Not Recovered/Not Resolved]

NARRATIVE: CASE EVENT DATE: 20170722
